FAERS Safety Report 6425505-3 (Version None)
Quarter: 2009Q4

REPORT INFORMATION
  Report Type: 
  Country: None (occurrence: None)
  Receive Date: 20091103
  Receipt Date: 20091023
  Transmission Date: 20100525
  Serious: Yes (Hospitalization, Other)
  Sender: FDA-Public Use
  Company Number: DE-WYE-H11901909

PATIENT
  Age: 65 Year
  Sex: Male
  Weight: 78 kg

DRUGS (1)
  1. PANTOPRAZOLE SODIUM [Suspect]
     Dosage: UNKNOWN
     Route: 042
     Dates: start: 20090914, end: 20090924

REACTIONS (1)
  - HEPATITIS ACUTE [None]
